FAERS Safety Report 8167001-1 (Version None)
Quarter: 2012Q1

REPORT INFORMATION
  Report Type: 
  Country: None (occurrence: None)
  Receive Date: 20120227
  Receipt Date: 20120220
  Transmission Date: 20120608
  Serious: Yes (Other)
  Sender: FDA-Public Use
  Company Number: TR-ABBOTT-10P-161-0672505-00

PATIENT
  Age: 17 Year
  Sex: Male

DRUGS (1)
  1. VALPROATE SODIUM [Suspect]
     Indication: EPILEPSY
     Dosage: 3 IN 1 DAY, GASTRO-RESISTANT TABLET
     Route: 048
     Dates: start: 20080601

REACTIONS (5)
  - CONVULSION [None]
  - MEDICATION RESIDUE [None]
  - DRUG INEFFECTIVE [None]
  - PRODUCT QUALITY ISSUE [None]
  - ABDOMINAL PAIN [None]
